FAERS Safety Report 22135272 (Version 1)
Quarter: 2023Q1

REPORT INFORMATION
  Report Type: Spontaneous
  Country: US (occurrence: US)
  Receive Date: 20230324
  Receipt Date: 20230324
  Transmission Date: 20230418
  Serious: No
  Sender: FDA-Public Use
  Company Number: US-SA-SAC20230316000880

PATIENT
  Age: 30 Year
  Sex: Male
  Weight: 122 kg

DRUGS (6)
  1. DUPIXENT [Suspect]
     Active Substance: DUPILUMAB
     Indication: Dermatitis atopic
     Dosage: 300 MG, QOW
     Route: 058
     Dates: start: 20221019
  2. AMLODIPINE [Concomitant]
     Active Substance: AMLODIPINE BESYLATE
  3. FLUVOXAMINE MALEATE [Concomitant]
     Active Substance: FLUVOXAMINE MALEATE
  4. LAMOTRIGINE [Concomitant]
     Active Substance: LAMOTRIGINE
  5. TRIAZOLAM [Concomitant]
     Active Substance: TRIAZOLAM
  6. VRAYLAR [Concomitant]
     Active Substance: CARIPRAZINE

REACTIONS (4)
  - Dermatitis atopic [Unknown]
  - Erythema [Unknown]
  - Pruritus [Recovering/Resolving]
  - Therapeutic response shortened [Unknown]
